FAERS Safety Report 5774423-2 (Version None)
Quarter: 2008Q2

REPORT INFORMATION
  Report Type: 
  Country: None (occurrence: None)
  Receive Date: 20080616
  Receipt Date: 20080612
  Transmission Date: 20081010
  Serious: Yes (Other)
  Sender: FDA-Public Use
  Company Number: US-RB-001882-08

PATIENT
  Sex: Female

DRUGS (2)
  1. SUBOXONE [Suspect]
     Route: 060
     Dates: start: 20071226, end: 20080501
  2. NEURONTIN [Concomitant]

REACTIONS (3)
  - BRAIN OEDEMA [None]
  - DRUG INEFFECTIVE FOR UNAPPROVED INDICATION [None]
  - PANIC ATTACK [None]
